FAERS Safety Report 8614403-2 (Version None)
Quarter: 2012Q3

REPORT INFORMATION
  Report Type: 
  Country: None (occurrence: None)
  Receive Date: 20120823
  Receipt Date: 20120821
  Transmission Date: 20120928
  Serious: Yes (Other)
  Sender: FDA-Public Use
  Company Number: CA-BAYER-2012-086035

PATIENT
  Age: 42 Year
  Sex: Male
  Weight: 120 kg

DRUGS (1)
  1. CIPRO XR [Suspect]
     Dosage: 1000 MG, QD
     Route: 048

REACTIONS (5)
  - NARCOLEPSY [None]
  - NERVE INJURY [None]
  - PELVIC PAIN [None]
  - PAIN IN EXTREMITY [None]
  - TENDON PAIN [None]
